FAERS Safety Report 9778224 (Version 1)
Quarter: 2013Q4

REPORT INFORMATION
  Report Type: Spontaneous
  Country: DE (occurrence: DE)
  Receive Date: 20131223
  Receipt Date: 20131223
  Transmission Date: 20140711
  Serious: Yes (Hospitalization, Congenital Anomaly)
  Sender: FDA-Public Use
  Company Number: GXKR2013DE003853

PATIENT
  Sex: 0

DRUGS (5)
  1. AMITRIPTYLINE [Suspect]
     Indication: DEPRESSION
     Dosage: 75 [MG/D ]
     Route: 064
     Dates: start: 20090908, end: 20100616
  2. TILIDINE+NALOXONE [Suspect]
     Indication: CROHN^S DISEASE
     Dosage: 8 [MG/D ] / 100 [MG/D ]
     Route: 064
     Dates: start: 20090908, end: 20100616
  3. ACIDO FOLICO [Concomitant]
     Dosage: 0.8 [MG/D ]
     Route: 064
     Dates: start: 20091012, end: 20091222
  4. CLAVERSAL [Concomitant]
     Dosage: 1500 MG, UNK
     Route: 064
     Dates: start: 20100310, end: 20100330
  5. METOCLOPRAMID [Concomitant]
     Route: 064
     Dates: start: 20100201, end: 20100228

REACTIONS (2)
  - Myoclonus [Recovering/Resolving]
  - Congenital choroid plexus cyst [Unknown]
